FAERS Safety Report 8454253-3 (Version None)
Quarter: 2012Q2

REPORT INFORMATION
  Report Type: 
  Country: None (occurrence: None)
  Receive Date: 20120620
  Receipt Date: 20120604
  Transmission Date: 20120825
  Serious: Yes (Hospitalization)
  Sender: FDA-Public Use
  Company Number: CHPA2012US012638

PATIENT
  Age: 55 Year
  Sex: Female

DRUGS (2)
  1. EXCEDRIN (MIGRAINE) [Suspect]
     Indication: MIGRAINE
     Dosage: 2 TO 4 DF, QD
     Route: 048
  2. EXCEDRIN (MIGRAINE) [Suspect]
     Indication: MIGRAINE
     Dosage: UNK, UNK
     Route: 048

REACTIONS (1)
  - MIGRAINE [None]
